FAERS Safety Report 10081333 (Version 2)
Quarter: 2014Q2

REPORT INFORMATION
  Report Type: Spontaneous
  Country: FR (occurrence: FR)
  Receive Date: 20140416
  Receipt Date: 20140514
  Transmission Date: 20141212
  Serious: Yes (Hospitalization)
  Sender: FDA-Public Use
  Company Number: FR-JNJFOC-20140402508

PATIENT
  Age: 44 Year
  Sex: Male

DRUGS (1)
  1. RISPERDAL [Suspect]
     Indication: SCHIZOPHRENIA
     Route: 048

REACTIONS (7)
  - Agitation [Recovered/Resolved]
  - Amnesia [Recovered/Resolved]
  - Status epilepticus [Recovered/Resolved with Sequelae]
  - Speech disorder [Recovered/Resolved]
  - Rhabdomyolysis [Unknown]
  - Prescribed overdose [Unknown]
  - Inappropriate schedule of drug administration [Unknown]
